FAERS Safety Report 25488777 (Version 1)
Quarter: 2025Q2

REPORT INFORMATION
  Report Type: Spontaneous
  Country: HR (occurrence: HR)
  Receive Date: 20250627
  Receipt Date: 20250627
  Transmission Date: 20250717
  Serious: Yes (Other)
  Sender: TEVA
  Company Number: None

PATIENT
  Age: 76 Year
  Sex: Female
  Weight: 60 kg

DRUGS (2)
  1. VENLAFAXINE HYDROCHLORIDE [Suspect]
     Active Substance: VENLAFAXINE HYDROCHLORIDE
     Indication: Depression
     Dosage: 1-0-1
     Route: 048
     Dates: start: 20250505, end: 20250602
  2. SULPIRIDE [Suspect]
     Active Substance: SULPIRIDE
     Indication: Depression
     Dosage: 1-1-0
     Route: 048
     Dates: start: 20221212, end: 20250505

REACTIONS (6)
  - Dyskinesia [Recovering/Resolving]
  - Dyskinesia [Recovering/Resolving]
  - Speech disorder [Recovering/Resolving]
  - Dysphagia [Recovering/Resolving]
  - Decreased appetite [Recovering/Resolving]
  - Pain in jaw [Recovering/Resolving]

NARRATIVE: CASE EVENT DATE: 20250510
